FAERS Safety Report 15477514 (Version 1)
Quarter: 2018Q4

REPORT INFORMATION
  Report Type: Spontaneous
  Country: US (occurrence: US)
  Receive Date: 20181009
  Receipt Date: 20181009
  Transmission Date: 20190205
  Serious: No
  Sender: FDA-Public Use
  Company Number: US-TEVA-2018-US-958629

PATIENT
  Sex: Female

DRUGS (2)
  1. AUSTEDO [Suspect]
     Active Substance: DEUTETRABENAZINE
     Dosage: 12 MILLIGRAM DAILY;
  2. LURASIDONE HCL [Concomitant]
     Active Substance: LURASIDONE
     Indication: TARDIVE DYSKINESIA

REACTIONS (4)
  - Pain [Unknown]
  - Anxiety [Unknown]
  - Dizziness [Unknown]
  - Somnolence [Unknown]
